FAERS Safety Report 7048117-X (Version None)
Quarter: 2010Q4

REPORT INFORMATION
  Report Type: 
  Country: None (occurrence: None)
  Receive Date: 20101015
  Receipt Date: 20101005
  Transmission Date: 20110411
  Serious: Yes (Hospitalization, Other)
  Sender: FDA-Public Use
  Company Number: GB-ELI_LILLY_AND_COMPANY-GB201006002316

PATIENT
  Age: 65 Year
  Sex: Female

DRUGS (8)
  1. BYETTA [Suspect]
     Indication: DIABETES MELLITUS
     Dosage: 10 MG, UNKNOWN
     Route: 058
     Dates: end: 20100430
  2. ATORVASTATIN [Concomitant]
     Dosage: 20 MG, DAILY (1/D)
  3. BENDROFLUMETHIAZIDE [Concomitant]
     Dosage: 2.5 MG, DAILY (1/D)
  4. CITALOPRAM HYDROBROMIDE [Concomitant]
     Dosage: 20 MG, 2/D
  5. FELODIPINE [Concomitant]
     Dosage: 10 MG, DAILY (1/D)
  6. NOVOMIX /01475801/ [Concomitant]
     Dosage: 20 IU, 2/D
  7. PROPRANOLOL [Concomitant]
     Dosage: 40 MG, DAILY (1/D)
  8. RAMIPRIL [Concomitant]
     Dosage: 10 MG, DAILY (1/D)

REACTIONS (2)
  - OFF LABEL USE [None]
  - PANCREATIC CARCINOMA [None]
